FAERS Safety Report 15268087 (Version 1)
Quarter: 2018Q3

REPORT INFORMATION
  Report Type: Spontaneous
  Country: DE (occurrence: DE)
  Receive Date: 20180812
  Receipt Date: 20180812
  Transmission Date: 20181010
  Serious: Yes (Other)
  Sender: FDA-Public Use
  Company Number: DE-TEVA-2018-DE-934275

PATIENT
  Age: 53 Year
  Sex: Male

DRUGS (6)
  1. AMINEURIN [Suspect]
     Active Substance: AMITRIPTYLINE HYDROCHLORIDE
     Dosage: 1 DF, ON FRIDAY
     Route: 065
  2. AMINEURIN [Suspect]
     Active Substance: AMITRIPTYLINE HYDROCHLORIDE
     Dosage: 1 DF, ON MONDAY
     Route: 065
  3. AMINEURIN [Suspect]
     Active Substance: AMITRIPTYLINE HYDROCHLORIDE
     Indication: PRODUCT USED FOR UNKNOWN INDICATION
     Dosage: 25 MILLIGRAM DAILY; 25 MG, (0?1?0)
     Route: 065
  4. AMINEURIN [Suspect]
     Active Substance: AMITRIPTYLINE HYDROCHLORIDE
     Dosage: 1 DF, ON SUNDAY
     Route: 065
  5. ZOLPIDEM [Suspect]
     Active Substance: ZOLPIDEM\ZOLPIDEM TARTRATE
     Indication: PRODUCT USED FOR UNKNOWN INDICATION
     Dosage: 9?12 TABLETS PER DAY
     Route: 065
  6. AMINEURIN [Suspect]
     Active Substance: AMITRIPTYLINE HYDROCHLORIDE
     Dosage: 2 DF, ON SATURDAY
     Route: 065

REACTIONS (11)
  - Increased appetite [Unknown]
  - Dysgeusia [Recovered/Resolved]
  - Constipation [Recovered/Resolved]
  - Fatigue [Unknown]
  - Chromaturia [Unknown]
  - Rash [Unknown]
  - Drug dependence [Unknown]
  - Psoriasis [Unknown]
  - Confusional state [Unknown]
  - Loss of libido [Unknown]
  - Overdose [Unknown]

NARRATIVE: CASE EVENT DATE: 2014
